FAERS Safety Report 21714471 (Version 1)
Quarter: 2022Q4

REPORT INFORMATION
  Report Type: Spontaneous
  Country: CN (occurrence: CN)
  Receive Date: 20221212
  Receipt Date: 20221212
  Transmission Date: 20230113
  Serious: Yes (Death)
  Sender: FDA-Public Use
  Company Number: CN-STRIDES ARCOLAB LIMITED-2022SP016587

PATIENT
  Sex: Male

DRUGS (11)
  1. PREDNISOLONE [Suspect]
     Active Substance: PREDNISOLONE
     Indication: Histiocytosis
     Dosage: UNK
     Route: 065
  2. PREDNISOLONE [Suspect]
     Active Substance: PREDNISOLONE
     Dosage: UNK (INDUCTION THERAPY)
     Route: 065
  3. PREDNISOLONE [Suspect]
     Active Substance: PREDNISOLONE
     Dosage: UNK (MAINTAINCE THERAPY)
     Route: 065
  4. DOXORUBICIN [Suspect]
     Active Substance: DOXORUBICIN
     Indication: Histiocytosis
     Dosage: 15 MILLIGRAM, (IVGTT- 3 TIMES A WEEK   )
     Route: 065
  5. DOXORUBICIN [Suspect]
     Active Substance: DOXORUBICIN
     Dosage: UNK(MAINTAINCE THERAPY)
     Route: 065
  6. CRIZOTINIB [Suspect]
     Active Substance: CRIZOTINIB
     Indication: Histiocytosis
     Dosage: 250 MILLIGRAM/DAY
     Route: 048
  7. CYCLOPHOSPHAMIDE [Suspect]
     Active Substance: CYCLOPHOSPHAMIDE
     Indication: Histiocytosis
     Dosage: 100 MILLIGRAM/DAY (IVGTT)
     Route: 065
  8. CYCLOPHOSPHAMIDE [Suspect]
     Active Substance: CYCLOPHOSPHAMIDE
     Dosage: UNK (MAINTAINCE THERAPY)
     Route: 065
  9. VINCRISTINE [Suspect]
     Active Substance: VINCRISTINE
     Indication: Histiocytosis
     Dosage: 0.35 MILLIGRAM (IVGTT- 4 TIMES A WEEK- INDUCTION CHEMOTHERAPY
     Route: 065
  10. VINCRISTINE [Suspect]
     Active Substance: VINCRISTINE
     Dosage: UNK (0.45-0.55MG 4 TIMES A WEEK-MAINTENANCE CHEMOTHERAPY.)
     Route: 065
  11. LEVETIRACETAM [Concomitant]
     Active Substance: LEVETIRACETAM
     Indication: Seizure
     Dosage: 100 MILLIGRAM, BID (IVGTT)
     Route: 065

REACTIONS (4)
  - Bacillus infection [Fatal]
  - Intracranial infection [Fatal]
  - Condition aggravated [Fatal]
  - Off label use [Unknown]
